FAERS Safety Report 18879536 (Version 1)
Quarter: 2021Q1

REPORT INFORMATION
  Report Type: Report from Study
  Country: IT (occurrence: IT)
  Receive Date: 20210211
  Receipt Date: 20210211
  Transmission Date: 20210420
  Serious: Yes (Hospitalization)
  Sender: FDA-Public Use
  Company Number: IT-TEVA-2021-IT-1878027

PATIENT
  Age: 78 Year
  Sex: Female

DRUGS (7)
  1. DIAMOX SEQUELS [Concomitant]
     Active Substance: ACETAZOLAMIDE
  2. FLUXUM [Suspect]
     Active Substance: PARNAPARIN SODIUM
     Indication: DEEP VEIN THROMBOSIS
     Dates: start: 20200101, end: 20210104
  3. RIVOTRIL [Suspect]
     Active Substance: CLONAZEPAM
     Dates: start: 20200101, end: 20210104
  4. DELTACORTENE 5 MG COMPRESSE [Suspect]
     Active Substance: PREDNISONE
     Dates: start: 20200101, end: 20210104
  5. INSULINA LISPRO SANOFI [Concomitant]
     Active Substance: INSULIN LISPRO
  6. OLANZAPINE. [Suspect]
     Active Substance: OLANZAPINE
     Dosage: 20 MG
     Route: 048
     Dates: start: 20200101, end: 20210104
  7. TRITTICO [Suspect]
     Active Substance: TRAZODONE HYDROCHLORIDE
     Dates: start: 20200101, end: 20210104

REACTIONS (1)
  - Anaemia [Not Recovered/Not Resolved]

NARRATIVE: CASE EVENT DATE: 20210104
